FAERS Safety Report 20623803 (Version 1)
Quarter: 2022Q1

REPORT INFORMATION
  Report Type: Spontaneous
  Country: US (occurrence: US)
  Receive Date: 20220322
  Receipt Date: 20220322
  Transmission Date: 20220423
  Serious: No
  Sender: FDA-Public Use
  Company Number: US-009507513-2203USA003377

PATIENT
  Sex: Female

DRUGS (1)
  1. ZINPLAVA [Suspect]
     Active Substance: BEZLOTOXUMAB
     Indication: Clostridium difficile infection
     Dosage: UNK
     Dates: start: 20220309

REACTIONS (2)
  - Circumstance or information capable of leading to medication error [Unknown]
  - Product use issue [Unknown]

NARRATIVE: CASE EVENT DATE: 20220309
